FAERS Safety Report 5163451-6 (Version None)
Quarter: 2006Q4

REPORT INFORMATION
  Report Type: 
  Country: None (occurrence: None)
  Receive Date: 20061204
  Receipt Date: 20061127
  Transmission Date: 20070319
  Serious: Yes (Other)
  Sender: FDA-Public Use
  Company Number: US-JNJFOC-20061104140

PATIENT
  Sex: Female
  Weight: 46 kg

DRUGS (6)
  1. REMICADE [Suspect]
     Dosage: EVERY 6-8 WEEKS
     Route: 042
  2. REMICADE [Suspect]
     Dosage: WEEK 6
     Route: 042
  3. REMICADE [Suspect]
     Dosage: WEEK 2
     Route: 042
  4. REMICADE [Suspect]
     Indication: CROHN'S DISEASE
     Dosage: WEEK 0
     Route: 042
  5. 6-MP [Concomitant]
  6. STERIODS. [Concomitant]

REACTIONS (1)
  - LYMPHOMA [None]
